FAERS Safety Report 7245545-4 (Version None)
Quarter: 2011Q1

REPORT INFORMATION
  Report Type: 
  Country: None (occurrence: None)
  Receive Date: 20110126
  Receipt Date: 20110117
  Transmission Date: 20110831
  Serious: Yes (Hospitalization)
  Sender: FDA-Public Use
  Company Number: JP-PFIZER INC-2011010579

PATIENT
  Age: 65 Year
  Sex: Male

DRUGS (14)
  1. ADRIACIN [Suspect]
     Dosage: 30 MG/M2
     Route: 041
     Dates: start: 20101124, end: 20101124
  2. PREDONINE [Suspect]
     Indication: ADULT T-CELL LYMPHOMA/LEUKAEMIA
     Dosage: 40 MG/M2
     Route: 048
     Dates: start: 20101007, end: 20101229
  3. ADRIACIN [Suspect]
     Dosage: 40 MG/M2
     Route: 041
     Dates: start: 20101116, end: 20101116
  4. FILDESIN [Suspect]
     Indication: ADULT T-CELL LYMPHOMA/LEUKAEMIA
     Dosage: 2.4 MG/M2
     Route: 041
     Dates: start: 20101026, end: 20101206
  5. ADRIACIN [Suspect]
     Dosage: 30 MG/M2
     Route: 041
     Dates: start: 20101014, end: 20101014
  6. ENDOXAN [Suspect]
     Indication: ADULT T-CELL LYMPHOMA/LEUKAEMIA
     Dosage: 350 MG/M2
     Route: 041
     Dates: start: 20101007, end: 20101222
  7. ADRIACIN [Suspect]
     Indication: ADULT T-CELL LYMPHOMA/LEUKAEMIA
     Dosage: 40 MG/M2
     Route: 041
     Dates: start: 20101007, end: 20101007
  8. ADRIACIN [Suspect]
     Dosage: 1 MG/KG
     Route: 041
     Dates: start: 20101029, end: 20101221
  9. ADRIACIN [Suspect]
     Dosage: 40 MG/M2
     Route: 041
     Dates: start: 20101222, end: 20101222
  10. CYMERIN [Suspect]
     Indication: ADULT T-CELL LYMPHOMA/LEUKAEMIA
     Dosage: 60 MG/M2
     Route: 041
     Dates: start: 20101014, end: 20101229
  11. ADRIACIN [Suspect]
     Dosage: 30 MG/M2
     Route: 041
     Dates: start: 20101229, end: 20101229
  12. ONCOVIN [Suspect]
     Indication: ADULT T-CELL LYMPHOMA/LEUKAEMIA
     Dosage: 1 MG/M2
     Route: 041
     Dates: start: 20101007, end: 20101222
  13. CARBOPLATIN [Suspect]
     Indication: ADULT T-CELL LYMPHOMA/LEUKAEMIA
     Dosage: 250 MG/M2
     Route: 041
     Dates: start: 20101029
  14. LASTET [Suspect]
     Indication: ADULT T-CELL LYMPHOMA/LEUKAEMIA
     Dosage: 100 MG/M2, 3X/3DAY
     Route: 041
     Dates: start: 20101029

REACTIONS (1)
  - PNEUMONIA [None]
